FAERS Safety Report 18384444 (Version 2)
Quarter: 2020Q4

REPORT INFORMATION
  Report Type: Spontaneous
  Country: US (occurrence: US)
  Receive Date: 20201014
  Receipt Date: 20201203
  Transmission Date: 20210114
  Serious: Yes (Other)
  Sender: FDA-Public Use
  Company Number: US-ALKERMES INC.-ALK-2020-004437

PATIENT
  Age: 63 Year
  Sex: Female
  Weight: 54.42 kg

DRUGS (2)
  1. VIVITROL [Suspect]
     Active Substance: NALTREXONE
     Indication: ALCOHOL ABUSE
     Dosage: 380 MILLIGRAM, QMO
     Route: 030
     Dates: start: 20200630, end: 20200630
  2. VIVITROL [Suspect]
     Active Substance: NALTREXONE
     Indication: ALCOHOLISM
     Dosage: 380 MILLIGRAM, QMO
     Route: 030
     Dates: start: 20200902, end: 20200902

REACTIONS (4)
  - Knee arthroplasty [Recovered/Resolved]
  - Pain [Not Recovered/Not Resolved]
  - Product administration error [Recovered/Resolved]
  - Pain in extremity [Not Recovered/Not Resolved]

NARRATIVE: CASE EVENT DATE: 20200902
